FAERS Safety Report 6100141-7 (Version None)
Quarter: 2009Q1

REPORT INFORMATION
  Report Type: 
  Country: None (occurrence: None)
  Receive Date: 20090302
  Receipt Date: 20090302
  Transmission Date: 20090719
  Serious: No
  Sender: FDA-Public Use
  Company Number: None

PATIENT
  Age: 75 Year
  Sex: Female
  Weight: 53.0709 kg

DRUGS (1)
  1. METOPROLOL TARTRATE [Suspect]
     Indication: BLOOD PRESSURE
     Dosage: 2 TABLETS TWICE A DAY PO
     Route: 048
     Dates: start: 20081110, end: 20090110

REACTIONS (3)
  - HALLUCINATION [None]
  - HEART RATE IRREGULAR [None]
  - PALPITATIONS [None]
